FAERS Safety Report 9885971 (Version 1)
Quarter: 2014Q1

REPORT INFORMATION
  Report Type: Spontaneous
  Country: US (occurrence: None)
  Receive Date: 20140207
  Receipt Date: 20140207
  Transmission Date: 20141002
  Serious: Yes (Hospitalization)
  Sender: FDA-Public Use
  Company Number: None

PATIENT
  Age: 79 Year
  Sex: Male

DRUGS (1)
  1. COREG CR [Suspect]
     Dates: start: 20140113

REACTIONS (3)
  - Convulsion [None]
  - Myocardial infarction [None]
  - Nonspecific reaction [None]
